FAERS Safety Report 23121614 (Version 1)
Quarter: 2023Q4

REPORT INFORMATION
  Report Type: Spontaneous
  Country: US (occurrence: US)
  Receive Date: 20231029
  Receipt Date: 20231029
  Transmission Date: 20240110
  Serious: Yes (Hospitalization, Other)
  Sender: FDA-Public Use
  Company Number: US-STRIDES ARCOLAB LIMITED-2023SP016060

PATIENT
  Age: 3 Decade
  Sex: Female

DRUGS (8)
  1. IBUPROFEN [Suspect]
     Active Substance: IBUPROFEN
     Indication: Pericarditis
     Dosage: 800 MILLIGRAM, TID
     Route: 065
  2. PREDNISOLONE [Suspect]
     Active Substance: PREDNISOLONE
     Indication: Pericarditis
     Dosage: 20 MILLIGRAM; DAILY
     Route: 048
  3. PREDNISOLONE [Suspect]
     Active Substance: PREDNISOLONE
     Dosage: UNK; TAPERED
     Route: 065
  4. ANAKINRA [Suspect]
     Active Substance: ANAKINRA
     Indication: Pericarditis
     Dosage: 100 MILLIGRAM; PER DAY
     Route: 065
  5. ANAKINRA [Suspect]
     Active Substance: ANAKINRA
     Dosage: 100 MILLIGRAM; 2-4 INJECTIONS OF 100 MG PER WEEK
     Route: 065
  6. ANAKINRA [Suspect]
     Active Substance: ANAKINRA
     Dosage: 50 MILLIGRAM; DAILY
     Route: 065
  7. NIFEDIPINE [Suspect]
     Active Substance: NIFEDIPINE
     Indication: Pre-eclampsia
     Dosage: 30 MILLIGRAM; DAILY
     Route: 065
  8. COLCHICINE [Concomitant]
     Active Substance: COLCHICINE
     Indication: Pericarditis
     Dosage: UNK
     Route: 065

REACTIONS (10)
  - Preterm premature rupture of membranes [Unknown]
  - Premature labour [Unknown]
  - Pre-eclampsia [Unknown]
  - Maternal exposure during pregnancy [Unknown]
  - Treatment failure [Unknown]
  - Mood altered [Unknown]
  - COVID-19 [Recovered/Resolved]
  - Pharyngitis streptococcal [Recovered/Resolved]
  - Insomnia [Unknown]
  - Off label use [Unknown]
